FAERS Safety Report 25206706 (Version 2)
Quarter: 2025Q2

REPORT INFORMATION
  Report Type: Spontaneous
  Country: US (occurrence: US)
  Receive Date: 20250417
  Receipt Date: 20250512
  Transmission Date: 20250716
  Serious: Yes (Other)
  Sender: SANOFI AVENTIS
  Company Number: US-SANOFI-02487179

PATIENT
  Age: 67 Year
  Sex: Male

DRUGS (2)
  1. TOUJEO MAX [Suspect]
     Active Substance: INSULIN GLARGINE
     Indication: Diabetes mellitus
     Dosage: 60 IU, QD IN THE MORNING; TREATMENT DURATION:SEVERAL YEARS
  2. TOUJEO MAX [Suspect]
     Active Substance: INSULIN GLARGINE

REACTIONS (7)
  - Hepatic cirrhosis [Unknown]
  - Renal failure [Unknown]
  - Illness [Unknown]
  - Cardiac disorder [Unknown]
  - Blood glucose increased [Unknown]
  - Device issue [Unknown]
  - Drug ineffective [Unknown]

NARRATIVE: CASE EVENT DATE: 20250301
